FAERS Safety Report 8000983-7 (Version None)
Quarter: 2011Q4

REPORT INFORMATION
  Report Type: 
  Country: None (occurrence: None)
  Receive Date: 20111222
  Receipt Date: 20101213
  Transmission Date: 20120403
  Serious: No
  Sender: FDA-Public Use
  Company Number: US-GLAXOSMITHKLINE-A0899538A

PATIENT
  Sex: Male

DRUGS (2)
  1. FLONASE [Suspect]
     Dosage: 2SPR PER DAY
     Route: 045
  2. FLONASE [Suspect]
     Indication: SEASONAL ALLERGY
     Dosage: 2SPR PER DAY
     Route: 045

REACTIONS (2)
  - PARANASAL SINUS HYPERSECRETION [None]
  - FUNGAL INFECTION [None]
